FAERS Safety Report 19409921 (Version 4)
Quarter: 2021Q3

REPORT INFORMATION
  Report Type: Other
  Country: US (occurrence: US)
  Receive Date: 20210614
  Receipt Date: 20210810
  Transmission Date: 20211014
  Serious: Yes (Other)
  Sender: FDA-Public Use
  Company Number: US-NEUROCRINE BIOSCIENCES INC.-2021NBI02786

PATIENT

DRUGS (40)
  1. PRISTIQ EXTENDED?RELEASE [Concomitant]
     Active Substance: DESVENLAFAXINE SUCCINATE
     Dosage: UNK
  2. OMEPRAZOLE. [Concomitant]
     Active Substance: OMEPRAZOLE
     Dosage: 20 MILLIGRAM, QD
     Route: 048
  3. ALBUTEROL SULFATE. [Concomitant]
     Active Substance: ALBUTEROL SULFATE
     Indication: WHEEZING
     Dosage: 1 DOSAGE FORM, BID
  4. CALCIUM [Concomitant]
     Active Substance: CALCIUM
     Dosage: 50 MILLIGRAM, QD
  5. GLUCAGEN HYPOKIT [Concomitant]
     Active Substance: GLUCAGON HYDROCHLORIDE
     Dosage: 1 MILLIGRAM, PRN
  6. METFORMIN HCL [Concomitant]
     Active Substance: METFORMIN HYDROCHLORIDE
     Dosage: 500 MILLIGRAM, BID
     Route: 048
  7. MUSCLE RUB [MENTHOL;METHYL SALICYLATE] [Concomitant]
     Dosage: UNK, BID AS NEEDED
     Route: 061
  8. RESTASIS [Concomitant]
     Active Substance: CYCLOSPORINE
     Dosage: 1 DROP, BID IN EACH EYE
     Route: 047
  9. INGREZZA [Suspect]
     Active Substance: VALBENAZINE
     Dosage: 80 MILLIGRAM, QD
     Route: 048
     Dates: start: 201712, end: 202105
  10. LEXAPRO [Concomitant]
     Active Substance: ESCITALOPRAM OXALATE
     Dosage: UNK
  11. VITAMIN B COMPLEX [Concomitant]
     Active Substance: CYANOCOBALAMIN\DEXPANTHENOL\NIACINAMIDE\PYRIDOXINE HYDROCHLORIDE\RIBOFLAVIN 5^-PHOSPHATE SODIUM\THIAMINE HYDROCHLORIDE\VITAMIN B COMPLEX
     Dosage: 1 DOSAGE FORM, QD
     Route: 048
  12. JANUVIA [Concomitant]
     Active Substance: SITAGLIPTIN PHOSPHATE
     Dosage: 100 MILLIGRAM, QD
     Route: 048
  13. ASPIRIN 81 [Concomitant]
     Active Substance: ASPIRIN
     Dosage: 81 MILLIGRAM, QD
     Route: 048
  14. ACETAMINOPHEN. [Concomitant]
     Active Substance: ACETAMINOPHEN
     Dosage: 2 DOSAGE FORM, EVERY 8 HOURS
     Route: 048
  15. ESCITALOPRAM OXALATE. [Concomitant]
     Active Substance: ESCITALOPRAM OXALATE
     Dosage: 10 MILLIGRAM, QD
     Route: 048
  16. PROAIR HFA [Concomitant]
     Active Substance: ALBUTEROL SULFATE
     Dosage: 2 PUFFS, PRN
  17. VENLAFAXINE HCL [Concomitant]
     Active Substance: VENLAFAXINE HYDROCHLORIDE
     Dosage: 75 MILLIGRAM, BID
     Route: 048
  18. VITAMIN D3 [Concomitant]
     Active Substance: CHOLECALCIFEROL
     Dosage: 1 DOSAGE FORM, WEEKLY
     Route: 048
  19. ROPINIROLE. [Concomitant]
     Active Substance: ROPINIROLE
     Dosage: 1 DOSAGE FORM, QHS
     Route: 048
  20. METFORMIN [Concomitant]
     Active Substance: METFORMIN HYDROCHLORIDE
     Dosage: UNK
  21. AUSTEDO [Concomitant]
     Active Substance: DEUTETRABENAZINE
     Dosage: 9 MILLIGRAM, BID
     Route: 048
  22. CLOZAPINE. [Concomitant]
     Active Substance: CLOZAPINE
     Dosage: 200 MILLIGRAM, QHS
     Route: 048
  23. FLUTICASONE + SALMETEROL [Concomitant]
     Active Substance: FLUTICASONE FUROATE\SALMETEROL XINAFOATE
     Dosage: UNK
  24. LORATADINE. [Concomitant]
     Active Substance: LORATADINE
     Dosage: 10 MILLIGRAM, QD
     Route: 048
  25. TRIHEXYPHENIDYL HCL [Concomitant]
     Active Substance: TRIHEXYPHENIDYL HYDROCHLORIDE
     Dosage: UNK
     Route: 048
  26. INGREZZA [Suspect]
     Active Substance: VALBENAZINE
     Indication: TARDIVE DYSKINESIA
     Dosage: 40 MILLIGRAM, QD
     Route: 048
     Dates: start: 202105, end: 202106
  27. ATORVASTATIN CALCIUM. [Concomitant]
     Active Substance: ATORVASTATIN CALCIUM
     Dosage: 10 MILLIGRAM, QD
     Route: 048
  28. HYDROCHLOROTHIAZIDE. [Concomitant]
     Active Substance: HYDROCHLOROTHIAZIDE
     Dosage: 25 MILLIGRAM, QD
     Route: 048
  29. LIQUID TEARS [Concomitant]
     Active Substance: CARBOXYMETHYLCELLULOSE
     Dosage: 1 DROP, TID IN EACH EYES
  30. AMLODIPINE BESYLATE. [Concomitant]
     Active Substance: AMLODIPINE BESYLATE
     Dosage: 5 MILLIGRAM, QD
     Route: 048
  31. BENGAY GREASELESS [Concomitant]
     Active Substance: MENTHOL\METHYL SALICYLATE
     Dosage: UNK, PRN EVERY 12 HOURS
  32. CRANBERRY [VACCINIUM SPP.] [Concomitant]
     Active Substance: CRANBERRY
     Dosage: 450 MILLIGRAM, TID
     Route: 048
  33. LISINOPRIL. [Concomitant]
     Active Substance: LISINOPRIL
     Dosage: 20 MILLIGRAM, QD
     Route: 048
  34. IRON [Concomitant]
     Active Substance: IRON
     Dosage: UNK
  35. FERROUS SULFATE. [Concomitant]
     Active Substance: FERROUS SULFATE
     Dosage: 1 DOSAGE FORM, BID
     Route: 048
  36. ACIDOPHILUS [Concomitant]
     Active Substance: LACTOBACILLUS ACIDOPHILUS
     Dosage: 1 DOSAGE FORM
  37. FLOVENT [Concomitant]
     Active Substance: FLUTICASONE PROPIONATE
     Dosage: UNK
  38. ALBUTEROL SULFATE. [Concomitant]
     Active Substance: ALBUTEROL SULFATE
     Indication: DYSPNOEA
     Dosage: 1 DOSAGE FORM, EVERY 4?6 HRS AS NEEDED
  39. IBUPROFEN. [Concomitant]
     Active Substance: IBUPROFEN
     Indication: PAIN
     Dosage: 200 MILLIGRAM, EVERY 24 HRS AS NEEDED
     Route: 048
  40. POTASSIUM CHLORIDE. [Concomitant]
     Active Substance: POTASSIUM CHLORIDE
     Dosage: 20 MILLIEQUIVALENT, QD
     Route: 048

REACTIONS (6)
  - Therapeutic product effect decreased [Unknown]
  - Upper limb fracture [Unknown]
  - Tardive dyskinesia [Unknown]
  - Tremor [Unknown]
  - Fall [Recovered/Resolved]
  - Depression [Unknown]

NARRATIVE: CASE EVENT DATE: 2021
